FAERS Safety Report 8711801 (Version 2)
Quarter: 2012Q4

REPORT INFORMATION
  Report Type: Report from Study
  Country: US (occurrence: US)
  Receive Date: 20120807
  Receipt Date: 20121017
  Transmission Date: 20130627
  Serious: Yes (Hospitalization, Other)
  Sender: FDA-Public Use
  Company Number: US-CELGENEUS-163-21660-12080191

PATIENT
  Age: 59 Year
  Sex: Female

DRUGS (16)
  1. ABRAXANE [Suspect]
     Indication: HEAD AND NECK CANCER
     Dosage: 167 Milligram
     Route: 065
     Dates: start: 20120618
  2. ABRAXANE [Suspect]
     Dosage: 167 Milligram
     Route: 065
     Dates: start: 20120716
  3. CETUXIMAB [Suspect]
     Indication: HEAD AND NECK CANCER
     Dosage: 250 milligram/sq. meter
     Route: 041
     Dates: start: 20120618, end: 20120730
  4. CARBOPLATIN [Suspect]
     Indication: HEAD AND NECK CANCER
     Dosage: 124 Milligram
     Route: 065
     Dates: start: 20120618
  5. CARBOPLATIN [Suspect]
     Dosage: 124 Milligram
     Route: 065
     Dates: start: 20120716
  6. FLUID [Concomitant]
     Indication: PARENTERAL REHYDRATION
     Route: 041
     Dates: start: 20120726
  7. ASA [Concomitant]
     Indication: PROPHYLACTIC
     Dosage: 81 Milligram
     Route: 065
  8. ATIVAN [Concomitant]
     Indication: ANXIETY
     Dosage: 1 Milligram
     Route: 065
  9. LANTUS [Concomitant]
     Indication: DIABETES
     Dosage: 40 IU (International Unit)
     Route: 058
  10. LIPITOR [Concomitant]
     Indication: HYPERLIPIDEMIA
     Dosage: 10 Milligram
     Route: 048
  11. LISINOPRIL [Concomitant]
     Indication: HYPERTENSION
     Dosage: 10 Milligram
     Route: 065
  12. METFORMIN [Concomitant]
     Indication: DIABETES
     Dosage: 2000 Milligram
     Route: 065
  13. MORPHINE SULFATE [Concomitant]
     Indication: PAIN
     Dosage: 15 Milligram
     Route: 065
  14. PROCHLORPERAZINE [Concomitant]
     Indication: NAUSEA
     Dosage: 10 Milligram
     Route: 048
  15. SENNA S [Concomitant]
     Indication: CONSTIPATION
     Dosage: 5 Tablet
     Route: 048
  16. ZOFRAN [Concomitant]
     Indication: NAUSEA
     Dosage: 8 Milligram
     Route: 048

REACTIONS (2)
  - Gastritis [Recovered/Resolved]
  - Hypomagnesaemia [Recovered/Resolved]
